FAERS Safety Report 4908573-7 (Version None)
Quarter: 2006Q1

REPORT INFORMATION
  Report Type: 
  Country: None (occurrence: None)
  Receive Date: 20060210
  Receipt Date: 20050901
  Transmission Date: 20060701
  Serious: No
  Sender: FDA-Public Use
  Company Number: US-GLAXOSMITHKLINE-A0572727A

PATIENT
  Age: 47 Year
  Sex: Female

DRUGS (3)
  1. PAXIL CR [Suspect]
     Indication: POSTPARTUM DEPRESSION
     Dosage: 37.5MG PER DAY
     Route: 048
     Dates: start: 19991101
  2. PAROXETINE HCL [Suspect]
     Indication: POSTPARTUM DEPRESSION
     Route: 048
  3. CORGARD [Concomitant]

REACTIONS (6)
  - ANXIETY [None]
  - CRYING [None]
  - DIZZINESS [None]
  - DRUG INEFFECTIVE [None]
  - NAUSEA [None]
  - PALPITATIONS [None]
